FAERS Safety Report 5108966-1 (Version None)
Quarter: 2006Q3

REPORT INFORMATION
  Report Type: 
  Country: None (occurrence: None)
  Receive Date: 20060918
  Receipt Date: 20060901
  Transmission Date: 20061208
  Serious: Yes (Hospitalization)
  Sender: FDA-Public Use
  Company Number: US200609001172

PATIENT
  Sex: Female

DRUGS (2)
  1. FORTEO [Suspect]
     Indication: OSTEOPOROSIS
     Dates: start: 20060101
  2. FORTEO [Concomitant]

REACTIONS (10)
  - ANAEMIA [None]
  - CARDIAC VALVE DISEASE [None]
  - DIABETES MELLITUS [None]
  - DIARRHOEA [None]
  - DIZZINESS [None]
  - DYSKINESIA [None]
  - FALL [None]
  - HEAD INJURY [None]
  - PHARMACEUTICAL PRODUCT COMPLAINT [None]
  - RENAL DISORDER [None]
